FAERS Safety Report 8616267-X (Version None)
Quarter: 2012Q3

REPORT INFORMATION
  Report Type: 
  Country: None (occurrence: None)
  Receive Date: 20120815
  Receipt Date: 20120815
  Transmission Date: 20120928
  Serious: Yes (Other)
  Sender: FDA-Public Use
  Company Number: None

PATIENT
  Age: 34 Year
  Sex: Male
  Weight: 99.7913 kg

DRUGS (2)
  1. DECADRON [Suspect]
     Indication: BRAIN OEDEMA
     Dosage: 2/DAILY PO
     Route: 048
     Dates: start: 20110927, end: 20111004
  2. DECADRON [Suspect]
     Indication: BRAIN OEDEMA
     Dosage: 2/DAILY PO
     Route: 048
     Dates: start: 20111005, end: 20111009

REACTIONS (1)
  - HICCUPS [None]
